FAERS Safety Report 9203530 (Version 1)
Quarter: 2013Q2

REPORT INFORMATION
  Report Type: Spontaneous
  Country: US (occurrence: US)
  Receive Date: 20130402
  Receipt Date: 20130402
  Transmission Date: 20140414
  Serious: Yes (Other)
  Sender: FDA-Public Use
  Company Number: US-PFIZER INC-2013103229

PATIENT
  Sex: Female
  Weight: 134 kg

DRUGS (11)
  1. LYRICA [Suspect]
     Indication: CONVULSION
     Dosage: 225MG IN THE MORNING AND 150 MG MIDDAY, 2X/DAY
  2. LYRICA [Suspect]
     Indication: SCIATICA
  3. LYRICA [Suspect]
     Indication: FIBROMYALGIA
  4. LYRICA [Suspect]
     Indication: NEURALGIA
  5. ZYRTEC [Concomitant]
     Indication: HYPERSENSITIVITY
     Dosage: UNK, AS NEEDED
  6. HYDROCHLOROTHIAZIDE [Concomitant]
     Indication: BLOOD PRESSURE ABNORMAL
     Dosage: 50 MG, 1X/DAY IN THE MORNING
  7. CLONIDINE [Concomitant]
     Indication: BLOOD PRESSURE ABNORMAL
     Dosage: 0.2 MG, 1X/DAY IN THE MORNING
  8. OMEPRAZOLE [Concomitant]
     Indication: GASTROOESOPHAGEAL REFLUX DISEASE
     Dosage: 20 MG, 2X/DAY
  9. MORPHINE SULFATE [Concomitant]
     Indication: BREAKTHROUGH PAIN
     Dosage: 15 MG, 5X/DAY
  10. DIAZEPAM [Concomitant]
     Indication: MUSCLE SPASMS
     Dosage: 5 MG, 3X/DAY
  11. VICODIN [Concomitant]
     Indication: BREAKTHROUGH PAIN
     Dosage: 7.5/300 MG DAILY

REACTIONS (2)
  - Drug prescribing error [Unknown]
  - Convulsion [Unknown]
